FAERS Safety Report 8588890-2 (Version None)
Quarter: 2012Q3

REPORT INFORMATION
  Report Type: 
  Country: None (occurrence: None)
  Receive Date: 20120813
  Receipt Date: 20120802
  Transmission Date: 20120928
  Serious: Yes (Other)
  Sender: FDA-Public Use
  Company Number: GB-BRISTOL-MYERS SQUIBB COMPANY-16593147

PATIENT
  Age: 43 Year
  Sex: Male
  Weight: 94 kg

DRUGS (6)
  1. ABACAVIR SULFATE/LAMIVUDINE [Suspect]
     Indication: IMMUNOSUPPRESSION
     Route: 048
     Dates: start: 20100101
  2. EFAVIRENZ [Suspect]
     Dates: end: 20120326
  3. RITONAVIR [Suspect]
  4. PREGABALIN [Concomitant]
     Route: 048
  5. NABILONE [Concomitant]
     Route: 048
  6. ATAZANAVIR [Suspect]
     Indication: IMMUNOSUPPRESSION
     Dosage: 1 DF:100 UNITS NOS
     Route: 048
     Dates: start: 20120327, end: 20120510

REACTIONS (3)
  - SLEEP DISORDER [None]
  - HEAD DISCOMFORT [None]
  - JAUNDICE [None]
